FAERS Safety Report 5727219-1 (Version None)
Quarter: 2008Q2

REPORT INFORMATION
  Report Type: 
  Country: None (occurrence: None)
  Receive Date: 20080430
  Receipt Date: 20080416
  Transmission Date: 20081010
  Serious: Yes (Hospitalization)
  Sender: FDA-Public Use
  Company Number: FR-1165882

PATIENT
  Age: 62 Year
  Sex: Male

DRUGS (2)
  1. TOBRADEX [Suspect]
     Indication: UVEITIS
     Dosage: 4 GTTS/DAY OPHTHALMIC
     Route: 047
     Dates: start: 20060601
  2. AZOPT [Suspect]
     Indication: UVEITIS
     Dosage: OPHTHALMIC
     Route: 047
     Dates: start: 20060601

REACTIONS (6)
  - CATARACT [None]
  - DRUG INEFFECTIVE [None]
  - EYE DISORDER [None]
  - HERPES ZOSTER OPHTHALMIC [None]
  - RETINAL DETACHMENT [None]
  - VITRITIS [None]
